FAERS Safety Report 14159209 (Version 1)
Quarter: 2017Q4

REPORT INFORMATION
  Report Type: Spontaneous
  Country: RU (occurrence: RU)
  Receive Date: 20171103
  Receipt Date: 20171103
  Transmission Date: 20180321
  Serious: Yes (Other)
  Sender: FDA-Public Use
  Company Number: PHHY2017RU152722

PATIENT
  Age: 25 Year
  Sex: Female

DRUGS (1)
  1. GILENYA [Suspect]
     Active Substance: FINGOLIMOD HYDROCHLORIDE
     Indication: MULTIPLE SCLEROSIS
     Dosage: UNK
     Route: 065
     Dates: start: 201106

REACTIONS (8)
  - Quadriplegia [Unknown]
  - Urinary retention [Unknown]
  - Central nervous system lesion [Unknown]
  - Muscular weakness [Unknown]
  - Immune reconstitution inflammatory syndrome [Unknown]
  - Multiple sclerosis relapse [Unknown]
  - Cognitive disorder [Recovering/Resolving]
  - Paraparesis [Unknown]

NARRATIVE: CASE EVENT DATE: 201306
